FAERS Safety Report 22287703 (Version 1)
Quarter: 2023Q2

REPORT INFORMATION
  Report Type: Spontaneous
  Country: IT (occurrence: IT)
  Receive Date: 20230505
  Receipt Date: 20230505
  Transmission Date: 20230722
  Serious: Yes (Other)
  Sender: FDA-Public Use
  Company Number: IT-STERISCIENCE B.V.-2023-ST-001275

PATIENT
  Sex: Female

DRUGS (5)
  1. BUPIVACAINE [Suspect]
     Active Substance: BUPIVACAINE
     Indication: Product used for unknown indication
     Dosage: THE PATIENT^S MOTHER DOSE WAS 10 MG
     Route: 064
  2. SUFENTANIL [Suspect]
     Active Substance: SUFENTANIL
     Indication: Product used for unknown indication
     Dosage: THE PATIENT^S MOTHER DOSE WAS 5 MICROGRAM (UG)
     Route: 064
  3. MORPHINE [Suspect]
     Active Substance: MORPHINE
     Indication: Product used for unknown indication
     Dosage: THE PATIENT^S MOTHER DOSE WAS 100MICROG
     Route: 064
  4. OXYTOCIN [Suspect]
     Active Substance: OXYTOCIN
     Indication: Product used for unknown indication
     Dosage: THE PATIENT^S MOTHER DOSE WAS 5 IU, SLOW BOLUS
     Route: 064
  5. OXYTOCIN [Suspect]
     Active Substance: OXYTOCIN
     Dosage: THE PATIENT^S MOTHER DOSE WAS 20 IU, CONTINUOUS INFUSION
     Route: 064

REACTIONS (2)
  - Premature baby [Unknown]
  - Foetal exposure during delivery [Unknown]
